FAERS Safety Report 7485606-8 (Version None)
Quarter: 2011Q2

REPORT INFORMATION
  Report Type: 
  Country: None (occurrence: None)
  Receive Date: 20110517
  Receipt Date: 20110104
  Transmission Date: 20111010
  Serious: Yes (Other)
  Sender: FDA-Public Use
  Company Number: US-BAYER-2011-001536

PATIENT
  Age: 94 Year
  Sex: Female

DRUGS (3)
  1. AVELOX [Suspect]
     Indication: BRONCHITIS
     Dosage: 400 MG, QD
     Route: 048
     Dates: start: 20101231
  2. NEURONTIN [Concomitant]
  3. UNCODEABLE ^UNCLASSIFIABLE^ [Concomitant]
     Indication: BLOOD PRESSURE ABNORMAL

REACTIONS (2)
  - NIGHTMARE [None]
  - HALLUCINATION, AUDITORY [None]
